FAERS Safety Report 16288942 (Version 2)
Quarter: 2021Q3

REPORT INFORMATION
  Report Type: Spontaneous
  Country: US (occurrence: US)
  Receive Date: 20190509
  Receipt Date: 20210802
  Transmission Date: 20211014
  Serious: Yes (Disabling, Other)
  Sender: FDA-Public Use
  Company Number: US-TEVA-2019-US-1047475

PATIENT
  Age: 55 Year
  Sex: Male
  Weight: 117 kg

DRUGS (26)
  1. VALSARTAN/HCTZ MACLEODS [Suspect]
     Active Substance: HYDROCHLOROTHIAZIDE\VALSARTAN
     Dosage: DOSAGE: 160/12.5 MG, TAKE ONE TABLET BY MOUTH DAILY
     Route: 048
     Dates: start: 20170515
  2. VALSARTAN AND HYDROCHLOROTHIAZIDE [Suspect]
     Active Substance: HYDROCHLOROTHIAZIDE\VALSARTAN
     Dosage: DOSAGE: 160/12.5 MG
     Route: 065
     Dates: start: 20161111
  3. VALSARTAN/HCTZ MACLEODS [Suspect]
     Active Substance: HYDROCHLOROTHIAZIDE\VALSARTAN
     Dosage: DOSAGE: 160/12.5 MG, TAKE ONE TABLET BY MOUTH DAILY
     Route: 048
     Dates: start: 20170712
  4. VALSARTAN/HCTZ ALEMBIC [Suspect]
     Active Substance: HYDROCHLOROTHIAZIDE\VALSARTAN
     Dosage: DOSAGE: 320/25 MG
     Route: 048
     Dates: start: 20180319
  5. VALSARTAN AND HYDROCHLOROTHIAZIDE [Suspect]
     Active Substance: HYDROCHLOROTHIAZIDE\VALSARTAN
     Dosage: DOSAGE: 160/12.5 MG
     Route: 065
     Dates: start: 20160606
  6. VALSARTAN AND HYDROCHLOROTHIAZIDE [Suspect]
     Active Substance: HYDROCHLOROTHIAZIDE\VALSARTAN
     Dosage: DOSAGE: 160/12.5 MG
     Route: 065
     Dates: start: 20170510
  7. VALSARTAN AND HYDROCHLOROTHIAZIDE [Suspect]
     Active Substance: HYDROCHLOROTHIAZIDE\VALSARTAN
     Dosage: DOSAGE: 160/12.5 MG
     Route: 065
     Dates: start: 20170610
  8. VALSARTAN. [Suspect]
     Active Substance: VALSARTAN
     Dosage: DOSAGE: 160 MG
     Route: 065
     Dates: start: 20161216, end: 20180917
  9. VALSARTAN/HCTZ MACLEODS [Suspect]
     Active Substance: HYDROCHLOROTHIAZIDE\VALSARTAN
     Indication: HYPERTENSION
     Dosage: DOSAGE: 160/12.5 MG, TAKE ONE TABLET BY MOUTH DAILY
     Route: 048
     Dates: start: 20161111
  10. VALSARTAN/HCTZ MACLEODS [Suspect]
     Active Substance: HYDROCHLOROTHIAZIDE\VALSARTAN
     Dosage: DOSAGE: 160/12.5 MG, TAKE ONE TABLET BY MOUTH DAILY
     Route: 048
     Dates: start: 20160712
  11. VALSARTAN/HCTZ MACLEODS [Suspect]
     Active Substance: HYDROCHLOROTHIAZIDE\VALSARTAN
     Dosage: DOSAGE: 160/12.5 MG, TAKE ONE TABLET BY MOUTH DAILY
     Route: 048
     Dates: start: 20161111
  12. VALSARTAN/HCTZ MACLEODS [Suspect]
     Active Substance: HYDROCHLOROTHIAZIDE\VALSARTAN
     Dosage: DOSAGE: 160/25 MG, TAKE ONE TABLET BY MOUTH DAILY
     Route: 048
     Dates: start: 20180319
  13. VALSARTAN AND HYDROCHLOROTHIAZIDE [Suspect]
     Active Substance: HYDROCHLOROTHIAZIDE\VALSARTAN
     Dosage: DOSAGE: 160/12.5 MG
     Route: 065
     Dates: start: 20160314
  14. VALSARTAN/HCTZ ALEMBIC [Suspect]
     Active Substance: HYDROCHLOROTHIAZIDE\VALSARTAN
     Indication: HYPERTENSION
     Dosage: DOSAGE: 320/25 MG
     Route: 065
     Dates: start: 20170719
  15. VALSARTAN. [Suspect]
     Active Substance: VALSARTAN
     Indication: HYPERTENSION
     Dosage: DOSAGE: 160 MG
     Route: 065
     Dates: start: 20140915, end: 20141214
  16. VALSARTAN AND HYDROCHLOROTHIAZIDE [Suspect]
     Active Substance: HYDROCHLOROTHIAZIDE\VALSARTAN
     Indication: HYPERTENSION
     Dosage: DOSAGE: 160/12.5 MG
     Route: 065
     Dates: start: 20151216
  17. VALSARTAN AND HYDROCHLOROTHIAZIDE [Suspect]
     Active Substance: HYDROCHLOROTHIAZIDE\VALSARTAN
     Dosage: DOSAGE: 160/12.5 MG
     Route: 065
     Dates: start: 20170217
  18. VALSARTAN AND HYDROCHLOROTHIAZIDE [Suspect]
     Active Substance: HYDROCHLOROTHIAZIDE\VALSARTAN
     Dosage: DOSAGE: 160/12.5 MG
     Dates: start: 20170626
  19. VALSARTAN/HCTZ ALEMBIC [Suspect]
     Active Substance: HYDROCHLOROTHIAZIDE\VALSARTAN
     Dosage: DOSAGE: 320/25 MG
     Route: 048
     Dates: start: 20171218
  20. VALSARTAN/HCTZ ALEMBIC [Suspect]
     Active Substance: HYDROCHLOROTHIAZIDE\VALSARTAN
     Dosage: DOSAGE: 320/25 MG
     Route: 048
     Dates: start: 20180807
  21. VALSARTAN/HCTZ ALEMBIC [Suspect]
     Active Substance: HYDROCHLOROTHIAZIDE\VALSARTAN
     Dosage: DOSAGE: 320/25 MG
     Route: 048
     Dates: start: 20171009
  22. VALSARTAN/HCTZ ALEMBIC [Suspect]
     Active Substance: HYDROCHLOROTHIAZIDE\VALSARTAN
     Dosage: DOSAGE: 160/25 MG
     Route: 048
     Dates: start: 20180619
  23. VALSARTAN/HCTZ ALEMBIC [Suspect]
     Active Substance: HYDROCHLOROTHIAZIDE\VALSARTAN
     Dosage: DOSAGE: 320/25 MG
     Route: 048
     Dates: start: 20180625
  24. VALSARTAN AND HYDROCHLOROTHIAZIDE [Suspect]
     Active Substance: HYDROCHLOROTHIAZIDE\VALSARTAN
     Dosage: DOSAGE: 160/12.5 MG
     Route: 065
     Dates: start: 20160825
  25. VALSARTAN AND HYDROCHLOROTHIAZIDE [Suspect]
     Active Substance: HYDROCHLOROTHIAZIDE\VALSARTAN
     Dosage: DOSAGE: 160/12.5 MG
     Route: 065
     Dates: start: 20161107
  26. VALSARTAN AND HYDROCHLOROTHIAZIDE [Suspect]
     Active Substance: HYDROCHLOROTHIAZIDE\VALSARTAN
     Dosage: DOSAGE: 160/12.5 MG
     Route: 065
     Dates: start: 20161122

REACTIONS (11)
  - Colorectal cancer [Unknown]
  - Intestinal obstruction [Recovered/Resolved]
  - Poor quality product administered [Unknown]
  - Obesity [Unknown]
  - Small intestine carcinoma [Recovered/Resolved]
  - Hepatitis C [Unknown]
  - Kidney enlargement [Unknown]
  - Hepatic function abnormal [Unknown]
  - Recalled product administered [Unknown]
  - Product contamination [Unknown]
  - Diabetes mellitus [Unknown]

NARRATIVE: CASE EVENT DATE: 20160106
